FAERS Safety Report 8403507-5 (Version None)
Quarter: 2012Q2

REPORT INFORMATION
  Report Type: 
  Country: None (occurrence: None)
  Receive Date: 20120601
  Receipt Date: 20120525
  Transmission Date: 20120825
  Serious: Yes (Hospitalization, Congenital Anomaly, Other)
  Sender: FDA-Public Use
  Company Number: US-PFIZER INC-2012128604

PATIENT
  Sex: Male
  Weight: 3.34 kg

DRUGS (8)
  1. TERAZOL 1 [Concomitant]
     Indication: FUNGAL INFECTION
     Dosage: EVERY DAY AT HOURS OF SLEEP
     Route: 064
     Dates: start: 20040805
  2. MULTI-VITAMINS [Concomitant]
     Dosage: UNK
     Route: 064
  3. ZOLOFT [Suspect]
     Indication: DEPRESSION
     Dosage: 50 MG, 1X/DAY
     Route: 064
     Dates: start: 20040114
  4. ZOLOFT [Suspect]
     Indication: MOOD SWINGS
  5. AMOXICILLIN [Concomitant]
     Dosage: 500 MG, 3X/DAY
     Route: 064
     Dates: start: 20040731
  6. ZOLOFT [Suspect]
     Indication: INSOMNIA
  7. DIFLUCAN [Concomitant]
     Indication: FUNGAL INFECTION
     Dosage: 150 MG, 1X/DAY
     Route: 064
     Dates: start: 20040721, end: 20040721
  8. AMOXICILLIN [Concomitant]
     Indication: URINARY TRACT INFECTION
     Dosage: 250 MG, 3X/DAY
     Route: 064
     Dates: start: 20040729

REACTIONS (6)
  - GASTROOESOPHAGEAL REFLUX DISEASE [None]
  - OTITIS MEDIA [None]
  - ENURESIS [None]
  - ARTERIAL DISORDER [None]
  - JAUNDICE NEONATAL [None]
  - MATERNAL EXPOSURE TIMING UNSPECIFIED [None]
